FAERS Safety Report 6215487-1 (Version None)
Quarter: 2009Q2

REPORT INFORMATION
  Report Type: 
  Country: None (occurrence: None)
  Receive Date: 20090603
  Receipt Date: 20090521
  Transmission Date: 20091009
  Serious: Yes (Death)
  Sender: FDA-Public Use
  Company Number: 005570

PATIENT
  Age: 40 Year
  Sex: Female

DRUGS (7)
  1. BUSULFEX [Suspect]
     Indication: STEM CELL TRANSPLANT
     Dosage: 0.8 KG, DAILY DOSE
     Route: 042
     Dates: start: 20090113, end: 20090113
  2. FLUDARABINE PHOSPHATE [Suspect]
     Indication: STEM CELL TRANSPLANT
     Dosage: 30 MG, QD
     Route: 042
     Dates: start: 20090111, end: 20090116
  3. LEVOFLOXACIN [Concomitant]
  4. FUNGUARD JPN (MICAFUNGIN SODIUM) [Concomitant]
  5. SANDIMMUNE [Concomitant]
  6. METHOTREXATE [Concomitant]
  7. FILGRASTIM (FILGRASTIM) [Concomitant]

REACTIONS (9)
  - FEBRILE NEUTROPENIA [None]
  - LIP SWELLING [None]
  - ORAL DISORDER [None]
  - PNEUMONIA [None]
  - RENAL IMPAIRMENT [None]
  - RESPIRATORY FAILURE [None]
  - SHOCK [None]
  - STOMATITIS [None]
  - URINE OUTPUT DECREASED [None]
